FAERS Safety Report 16910791 (Version 1)
Quarter: 2019Q4

REPORT INFORMATION
  Report Type: Report from Study
  Country: None (occurrence: MX)
  Receive Date: 20191012
  Receipt Date: 20191012
  Transmission Date: 20200122
  Serious: Yes (Hospitalization)
  Sender: FDA-Public Use
  Company Number: MX-ABBVIE-19K-107-2956495-00

PATIENT
  Age: 46 Year
  Sex: Female
  Weight: 49.5 kg

DRUGS (3)
  1. AMIKACIN. [Concomitant]
     Active Substance: AMIKACIN
     Indication: GASTROENTERITIS
     Route: 030
     Dates: start: 20190814, end: 20190818
  2. LEFLUNOMIDE. [Concomitant]
     Active Substance: LEFLUNOMIDE
     Indication: RHEUMATOID ARTHRITIS
     Route: 048
     Dates: start: 20190123, end: 20190828
  3. HUMIRA [Suspect]
     Active Substance: ADALIMUMAB
     Indication: RHEUMATOID ARTHRITIS
     Route: 058
     Dates: start: 20190123, end: 20190828

REACTIONS (12)
  - Vomiting [Recovering/Resolving]
  - Bronchial wall thickening [Unknown]
  - Pleural effusion [Unknown]
  - Vomiting [Recovered/Resolved]
  - Nausea [Recovered/Resolved]
  - Pleural disorder [Unknown]
  - Food intolerance [Recovered/Resolved]
  - Food intolerance [Recovering/Resolving]
  - Dyspnoea [Unknown]
  - Abdominal pain [Unknown]
  - Generalised oedema [Unknown]
  - Nausea [Recovering/Resolving]

NARRATIVE: CASE EVENT DATE: 20190814
